FAERS Safety Report 10024957 (Version 1)
Quarter: 2014Q1

REPORT INFORMATION
  Report Type: Spontaneous
  Country: US (occurrence: None)
  Receive Date: 20140318
  Receipt Date: 20140318
  Transmission Date: 20141002
  Serious: Yes (Other)
  Sender: FDA-Public Use
  Company Number: DEP_01924_2014

PATIENT
  Age: 68 Year
  Sex: Male

DRUGS (2)
  1. GABAPENTIN [Suspect]
     Indication: HYPOAESTHESIA
     Dosage: 300 MG, BEFORE BEDTIME; 2 DAYS UNTIL NOT CONTINUING
  2. GABAPENTIN [Suspect]
     Indication: OFF LABEL USE
     Dosage: 300 MG, BEFORE BEDTIME; 2 DAYS UNTIL NOT CONTINUING

REACTIONS (2)
  - Neurotoxicity [None]
  - Asterixis [None]
